FAERS Safety Report 11840489 (Version 1)
Quarter: 2015Q4

REPORT INFORMATION
  Report Type: Spontaneous
  Country: BR (occurrence: BR)
  Receive Date: 20151216
  Receipt Date: 20151216
  Transmission Date: 20160305
  Serious: Yes (Other)
  Sender: FDA-Public Use
  Company Number: BR-SA-2015SA210049

PATIENT
  Age: 24 Year
  Sex: Female

DRUGS (1)
  1. DORFLEX ICY HOT [Suspect]
     Active Substance: MENTHOL
     Dosage: 73ML, APPLIED FROM 3 TO 4 TIMES IN THE NECK
     Route: 065
     Dates: start: 201512, end: 201512

REACTIONS (6)
  - Thermal burn [Unknown]
  - Blister [Unknown]
  - Application site erythema [None]
  - Erythema [Unknown]
  - Application site vesicles [None]
  - Application site pain [None]

NARRATIVE: CASE EVENT DATE: 201512
